FAERS Safety Report 7032610-X (Version None)
Quarter: 2010Q4

REPORT INFORMATION
  Report Type: 
  Country: None (occurrence: None)
  Receive Date: 20101007
  Receipt Date: 20100929
  Transmission Date: 20110411
  Serious: Yes (Life-Threatening)
  Sender: FDA-Public Use
  Company Number: US-NAPPMUNDI-USA-2010-0047960

PATIENT
  Age: 47 Year
  Sex: Male

DRUGS (1)
  1. DILAUDID [Suspect]
     Indication: PAIN

REACTIONS (2)
  - BRAIN INJURY [None]
  - RESPIRATORY ARREST [None]
